FAERS Safety Report 7717819-1 (Version None)
Quarter: 2011Q3

REPORT INFORMATION
  Report Type: 
  Country: None (occurrence: None)
  Receive Date: 20110830
  Receipt Date: 20110824
  Transmission Date: 20111222
  Serious: Yes (Other)
  Sender: FDA-Public Use
  Company Number: JP-PFIZER INC-2011176586

PATIENT
  Age: 49 Year
  Sex: Male

DRUGS (5)
  1. CARBAMAZEPINE [Suspect]
     Indication: EPILEPSY
     Dosage: 1000 MG/DAY
     Dates: start: 20060101
  2. CLOBAZAM [Suspect]
     Indication: EPILEPSY
     Dosage: 20 MG/DAY
     Dates: start: 20060101
  3. GABAPENTIN [Suspect]
     Indication: EPILEPSY
     Dosage: 1800 MG/DAY
     Route: 048
     Dates: start: 20060101
  4. CARBAMAZEPINE [Suspect]
     Dosage: 1800 MG/DAY
  5. TOPIRAMATE [Suspect]
     Indication: EPILEPSY
     Dosage: 50 MG/DAY

REACTIONS (5)
  - MEMORY IMPAIRMENT [None]
  - GAIT DISTURBANCE [None]
  - CONVULSION [None]
  - HYPONATRAEMIA [None]
  - SOMNOLENCE [None]
